FAERS Safety Report 9645713 (Version 1)
Quarter: 2013Q4

REPORT INFORMATION
  Report Type: Spontaneous
  Country: US (occurrence: US)
  Receive Date: 20131025
  Receipt Date: 20131025
  Transmission Date: 20140711
  Serious: Yes (Other)
  Sender: FDA-Public Use
  Company Number: CHPA2013US016061

PATIENT
  Age: 76 Year
  Sex: Female

DRUGS (9)
  1. 4 WAY SALINE MOISTURIZING MIST [Suspect]
     Indication: SINUS DISORDER
     Dosage: A FEW SPRAYS PER NOSTRIL, ONCE OR TWICE PER DAY, ABOUT 5 DAYS PER WEEK
     Route: 045
  2. 4 WAY SALINE MOISTURIZING MIST [Suspect]
     Indication: PROPHYLAXIS
  3. 4 WAY SALINE MOISTURIZING MIST [Suspect]
     Indication: OFF LABEL USE
  4. CO Q-10 [Concomitant]
     Dosage: UNK, UNK
  5. GLUCOSAMINE [Concomitant]
     Dosage: UNK, UNK
  6. PLAVIX [Concomitant]
     Dosage: UNK, UNK
  7. RAMPRIL [Concomitant]
     Dosage: UNK, UNK
  8. MULTAMIN//VITAMINS NOS [Concomitant]
     Dosage: UNK, UNK
  9. ATORVASTATIN [Concomitant]
     Dosage: UNK, UNK

REACTIONS (6)
  - Cardiac disorder [Unknown]
  - Bronchitis [Recovered/Resolved]
  - Seasonal allergy [Recovered/Resolved]
  - Sinus disorder [Recovered/Resolved]
  - Therapeutic response unexpected [Unknown]
  - Expired drug administered [Unknown]
